FAERS Safety Report 22031405 (Version 1)
Quarter: 2023Q1

REPORT INFORMATION
  Report Type: Spontaneous
  Country: US (occurrence: US)
  Receive Date: 20230224
  Receipt Date: 20230224
  Transmission Date: 20230418
  Serious: Yes (Hospitalization, Other)
  Sender: FDA-Public Use
  Company Number: US-SUN PHARMACEUTICAL INDUSTRIES LTD-2023R1-380214

PATIENT
  Age: 24 Year
  Sex: Male

DRUGS (1)
  1. LOPERAMIDE [Suspect]
     Active Substance: LOPERAMIDE
     Indication: Product used for unknown indication
     Dosage: UNK, EVERY OTHER DAY
     Route: 065

REACTIONS (7)
  - Overdose [Unknown]
  - Tachycardia [Unknown]
  - Ventricular tachycardia [Unknown]
  - Hypotension [Unknown]
  - Mental status changes [Unknown]
  - Intentional product misuse [Unknown]
  - Withdrawal syndrome [Unknown]
